FAERS Safety Report 6476559-X (Version None)
Quarter: 2009Q4

REPORT INFORMATION
  Report Type: 
  Country: None (occurrence: None)
  Receive Date: 20091207
  Receipt Date: 20091125
  Transmission Date: 20100525
  Serious: Yes (Hospitalization)
  Sender: FDA-Public Use
  Company Number: MX-KINGPHARMUSA00001-K200901432

PATIENT
  Age: 34 Year
  Sex: Female

DRUGS (3)
  1. TAPAZOLE [Suspect]
     Indication: GOITRE
     Dosage: 15 MG, QD
  2. PROPRANOLOL HYDROCHLORIDE [Suspect]
     Indication: GOITRE
     Dosage: 20 MG, QD
  3. PREDNISONE [Suspect]
     Indication: GOITRE
     Dosage: 50 MG, QD

REACTIONS (12)
  - AGRANULOCYTOSIS [None]
  - DYSPHAGIA [None]
  - DYSPNOEA [None]
  - HYPOTENSION [None]
  - MICROCYTIC ANAEMIA [None]
  - MUCORMYCOSIS [None]
  - NASAL MUCOSAL DISORDER [None]
  - NASAL NECROSIS [None]
  - NEUTROPENIA [None]
  - ODYNOPHAGIA [None]
  - PYREXIA [None]
  - THROMBOCYTOPENIA [None]
